FAERS Safety Report 25834833 (Version 3)
Quarter: 2025Q4

REPORT INFORMATION
  Report Type: Report from Study
  Country: CN (occurrence: CN)
  Receive Date: 20250923
  Receipt Date: 20251118
  Transmission Date: 20260118
  Serious: No
  Sender: TEVA
  Company Number: CN-TEVA-VS-3373225

PATIENT
  Age: 21 Year
  Sex: Male
  Weight: 42 kg

DRUGS (5)
  1. AUSTEDO [Suspect]
     Active Substance: DEUTETRABENAZINE
     Indication: Huntington^s disease
     Dosage: WEEK 2 TO WEEK 4: 12 MG
     Route: 048
     Dates: start: 20250913, end: 20250919
  2. AUSTEDO [Suspect]
     Active Substance: DEUTETRABENAZINE
     Indication: Huntington^s disease
     Dosage: WEEK 1: 12 MG IN THE MORNING, 6 MG IN THE EVENING
     Route: 048
     Dates: start: 20250828
  3. TIAPRIDE HYDROCHLORIDE [Concomitant]
     Active Substance: TIAPRIDE HYDROCHLORIDE
     Indication: Huntington^s disease
     Dosage: TIME INTERVAL: 0.33333333 DAYS
     Route: 048
     Dates: start: 202502
  4. MIRTAZAPINE [Concomitant]
     Active Substance: MIRTAZAPINE
     Indication: Sleep disorder
     Route: 048
     Dates: start: 20250828
  5. ESZOPICLONE [Concomitant]
     Active Substance: ESZOPICLONE
     Indication: Sleep disorder
     Route: 048
     Dates: start: 20250702

REACTIONS (1)
  - Dystonia [Recovered/Resolved]

NARRATIVE: CASE EVENT DATE: 20250909
